FAERS Safety Report 10693024 (Version 1)
Quarter: 2015Q1

REPORT INFORMATION
  Report Type: Spontaneous
  Country: US (occurrence: None)
  Receive Date: 20150105
  Receipt Date: 20150105
  Transmission Date: 20150720
  Serious: Yes (Hospitalization)
  Sender: FDA-Public Use
  Company Number: None

PATIENT
  Age: 37 Year
  Sex: Female

DRUGS (2)
  1. ALLI [Suspect]
     Active Substance: ORLISTAT
     Indication: WEIGHT CONTROL
     Dosage: 1 PILL THREE TIMES DAILY TAKEN BY MOUTH
     Route: 048
     Dates: start: 20130123, end: 20130922
  2. INSULIN [Suspect]
     Active Substance: INSULIN NOS

REACTIONS (2)
  - Diabetes mellitus [None]
  - Pancreatitis acute [None]

NARRATIVE: CASE EVENT DATE: 20130924
